FAERS Safety Report 12603430 (Version 2)
Quarter: 2016Q3

REPORT INFORMATION
  Report Type: Report from Study
  Country: BR (occurrence: BR)
  Receive Date: 20160728
  Receipt Date: 20160830
  Transmission Date: 20161109
  Serious: Yes (Hospitalization, Other)
  Sender: FDA-Public Use
  Company Number: PHHY2016BR087185

PATIENT
  Age: 44 Year
  Sex: Female
  Weight: 71 kg

DRUGS (3)
  1. EXJADE [Suspect]
     Active Substance: DEFERASIROX
     Indication: SICKLE CELL ANAEMIA
     Dosage: 2 DF OF 500 MG, UNK
     Route: 065
     Dates: start: 201508
  2. EXJADE [Suspect]
     Active Substance: DEFERASIROX
     Dosage: 500 MG, UNK
     Route: 065
     Dates: start: 201601, end: 201610
  3. EXJADE [Suspect]
     Active Substance: DEFERASIROX
     Dosage: 2 DF OF 500 MG, UNK
     Route: 065
     Dates: start: 201512

REACTIONS (23)
  - Spinal pain [Recovering/Resolving]
  - Drug intolerance [Unknown]
  - Nausea [Unknown]
  - Osteonecrosis [Unknown]
  - Spinal disorder [Unknown]
  - Gait disturbance [Unknown]
  - Inflammation [Unknown]
  - Vomiting [Unknown]
  - Dyspepsia [Unknown]
  - Retching [Unknown]
  - Serum ferritin increased [Unknown]
  - Cough [Not Recovered/Not Resolved]
  - Productive cough [Unknown]
  - Neck mass [Unknown]
  - Mass [Unknown]
  - Sickle cell anaemia with crisis [Unknown]
  - Pain in extremity [Recovering/Resolving]
  - Shock [Unknown]
  - Gastritis [Unknown]
  - Pain [Recovering/Resolving]
  - Abdominal pain upper [Unknown]
  - Malaise [Unknown]
  - Arthralgia [Unknown]

NARRATIVE: CASE EVENT DATE: 201602
